FAERS Safety Report 4666513-2 (Version None)
Quarter: 2005Q2

REPORT INFORMATION
  Report Type: 
  Country: None (occurrence: None)
  Receive Date: 20050518
  Receipt Date: 20050506
  Transmission Date: 20051028
  Serious: Yes (Hospitalization)
  Sender: FDA-Public Use
  Company Number: 2005055850

PATIENT
  Age: 33 Year
  Sex: Female
  Weight: 59.1 kg

DRUGS (1)
  1. ZITHROMAX [Suspect]
     Indication: CHLAMYDIAL INFECTION
     Dosage: 1000 MG (1000 MG, 1 IN 1 D), ORAL
     Route: 048
     Dates: start: 20050310, end: 20050310

REACTIONS (6)
  - ABDOMINAL DISTENSION [None]
  - ABDOMINAL PAIN LOWER [None]
  - CONSTIPATION [None]
  - DIARRHOEA [None]
  - DRUG EXPOSURE DURING PREGNANCY [None]
  - FLATULENCE [None]
